FAERS Safety Report 6767408-0 (Version None)
Quarter: 2010Q2

REPORT INFORMATION
  Report Type: 
  Country: None (occurrence: None)
  Receive Date: 20100614
  Receipt Date: 20100605
  Transmission Date: 20101027
  Serious: Yes (Hospitalization)
  Sender: FDA-Public Use
  Company Number: FR-BAYER-200710606BFR

PATIENT
  Age: 62 Year
  Sex: Male
  Weight: 87 kg

DRUGS (56)
  1. SORAFENIB [Suspect]
     Indication: NON-SMALL CELL LUNG CANCER
     Dosage: TOTAL DAILY DOSE: 800 MG  UNIT DOSE: 200 MG
     Route: 048
     Dates: start: 20070803, end: 20070807
  2. SORAFENIB [Suspect]
     Dosage: TOTAL DAILY DOSE: 800 MG  UNIT DOSE: 200 MG
     Route: 048
     Dates: start: 20070810, end: 20071020
  3. GEMCITABINE HCL [Suspect]
     Indication: NON-SMALL CELL LUNG CANCER
     Route: 042
     Dates: start: 20070803, end: 20070803
  4. GEMCITABINE HCL [Suspect]
     Route: 042
     Dates: start: 20070824, end: 20070824
  5. GEMCITABINE HCL [Suspect]
     Route: 042
     Dates: start: 20070919, end: 20070919
  6. GEMCITABINE HCL [Suspect]
     Route: 042
     Dates: start: 20071010, end: 20071010
  7. CISPLATIN [Suspect]
     Indication: NON-SMALL CELL LUNG CANCER
     Route: 042
     Dates: start: 20070919, end: 20070919
  8. CISPLATIN [Suspect]
     Route: 042
     Dates: start: 20071010, end: 20071010
  9. CISPLATIN [Suspect]
     Route: 042
     Dates: start: 20070803, end: 20070803
  10. CISPLATIN [Suspect]
     Route: 042
     Dates: start: 20070824, end: 20070824
  11. SERMION [Concomitant]
     Indication: QUADRIPLEGIA
     Route: 048
     Dates: start: 20070101, end: 20071030
  12. VALIUM [Concomitant]
     Indication: ANXIETY
     Route: 048
     Dates: start: 20071030
  13. LIORESAL [Concomitant]
     Indication: NEURALGIA
     Route: 065
     Dates: start: 20070701, end: 20071030
  14. DURAGESIC-100 [Concomitant]
     Indication: CHEST PAIN
     Route: 062
     Dates: start: 20070801, end: 20070912
  15. DURAGESIC-100 [Concomitant]
     Route: 065
     Dates: start: 20070913, end: 20071006
  16. DURAGESIC-100 [Concomitant]
     Route: 065
     Dates: start: 20071010, end: 20071025
  17. ACTISKENAN [Concomitant]
     Indication: CHEST PAIN
     Route: 065
     Dates: start: 20070808, end: 20071021
  18. RIVOTRIL [Concomitant]
     Indication: NEURALGIA
     Dosage: 12 DROPS
     Route: 065
     Dates: start: 20070801
  19. ARANESP [Concomitant]
     Indication: ANAEMIA
     Route: 065
     Dates: start: 20070803, end: 20070903
  20. ECONAZOLE NITRATE [Concomitant]
     Indication: ANTIFUNGAL PROPHYLAXIS
     Route: 065
     Dates: start: 20070801
  21. DAKTARIN [Concomitant]
     Indication: FUNGAL INFECTION
     Route: 065
     Dates: start: 20070801
  22. DAKTARIN [Concomitant]
     Route: 065
     Dates: start: 20070816, end: 20070817
  23. EDUCTYL [Concomitant]
     Indication: CONSTIPATION
     Route: 065
     Dates: start: 20070801
  24. DEBRIDAT [Concomitant]
     Indication: GASTROINTESTINAL MOTILITY DISORDER
     Route: 065
     Dates: start: 20070701, end: 20071030
  25. PRIMPERAN [Concomitant]
     Indication: PROPHYLAXIS OF NAUSEA AND VOMITING
     Dates: start: 20070803
  26. DOLIPRANE [Concomitant]
     Indication: CHEST PAIN
     Route: 065
     Dates: start: 20070801
  27. ZOPHREN [Concomitant]
     Indication: PROPHYLAXIS OF NAUSEA AND VOMITING
     Dates: start: 20071010, end: 20071010
  28. ZOPHREN [Concomitant]
     Dates: start: 20070824, end: 20070824
  29. ZOPHREN [Concomitant]
     Dates: start: 20070804, end: 20070806
  30. ZOPHREN [Concomitant]
     Dates: start: 20070803, end: 20070803
  31. SOLU-MEDROL [Concomitant]
     Indication: PROPHYLAXIS OF NAUSEA AND VOMITING
     Dates: start: 20071010, end: 20071010
  32. SOLU-MEDROL [Concomitant]
     Dates: start: 20070824, end: 20070824
  33. SOLU-MEDROL [Concomitant]
     Dates: start: 20070803, end: 20070803
  34. DEXTROSE 5% [Concomitant]
     Indication: DEHYDRATION
     Route: 065
     Dates: start: 20071025, end: 20071025
  35. DEXTROSE 5% [Concomitant]
     Dates: start: 20071010, end: 20071010
  36. DEXTROSE 5% [Concomitant]
     Dates: start: 20070919, end: 20070919
  37. DEXTROSE 5% [Concomitant]
     Route: 065
     Dates: start: 20071026, end: 20071026
  38. AMOXICILLIN [Concomitant]
     Indication: PNEUMONIA
     Route: 065
     Dates: start: 20070814, end: 20070816
  39. CIFLOX [Concomitant]
     Indication: PNEUMONIA
     Route: 065
     Dates: start: 20070808, end: 20070816
  40. CEFTRIAXONE [Concomitant]
     Indication: PNEUMONIA
     Route: 065
     Dates: start: 20070808, end: 20070813
  41. LOVENOX [Concomitant]
     Indication: PROPHYLAXIS
     Route: 065
     Dates: start: 20070808, end: 20070816
  42. LOVENOX [Concomitant]
     Route: 065
     Dates: start: 20071028, end: 20071029
  43. DAFALGAN [Concomitant]
     Indication: CHEST PAIN
     Route: 065
     Dates: start: 20070809, end: 20070810
  44. DUPHALAC [Concomitant]
     Indication: CONSTIPATION
     Route: 065
     Dates: start: 20070805
  45. OFLOCET [Concomitant]
     Indication: PNEUMONIA
     Route: 065
     Dates: start: 20070805, end: 20070811
  46. CEFPODOXIME PROXETIL [Concomitant]
     Indication: PNEUMONIA
     Route: 065
     Dates: start: 20070805, end: 20070811
  47. LASIX [Concomitant]
     Indication: OLIGURIA
     Route: 065
     Dates: start: 20071025, end: 20071027
  48. TERCIAN [Concomitant]
     Indication: ANXIETY
     Route: 065
     Dates: start: 20071021
  49. FUNGIZONE [Concomitant]
     Indication: ORAL FUNGAL INFECTION
     Route: 065
     Dates: start: 20070807
  50. XYLOCAINE [Concomitant]
     Indication: ORAL FUNGAL INFECTION
     Route: 065
     Dates: start: 20070831, end: 20070914
  51. NEORECORMON [Concomitant]
     Indication: ANAEMIA PROPHYLAXIS
     Route: 065
     Dates: start: 20071010
  52. PERFALGAN [Concomitant]
     Indication: CHEST PAIN
     Route: 065
     Dates: start: 20070426
  53. MORPHINE [Concomitant]
     Indication: BACK PAIN
     Dosage: 80 MG + 10 MG
     Route: 065
     Dates: start: 20071025, end: 20071029
  54. MORPHINE [Concomitant]
     Route: 065
     Dates: start: 20071021, end: 20071029
  55. INIPOMP [Concomitant]
     Indication: PROPHYLAXIS AGAINST GASTROINTESTINAL ULCER
     Route: 065
     Dates: start: 20071025, end: 20071030
  56. LANSOYL [Concomitant]
     Indication: MUCOSAL INFLAMMATION
     Route: 065
     Dates: start: 20071025

REACTIONS (2)
  - BACK PAIN [None]
  - CONVULSION [None]
